FAERS Safety Report 21413127 (Version 1)
Quarter: 2022Q4

REPORT INFORMATION
  Report Type: Report from Study
  Country: US (occurrence: US)
  Receive Date: 20221005
  Receipt Date: 20221005
  Transmission Date: 20230113
  Serious: Yes (Other)
  Sender: FDA-Public Use
  Company Number: US-CELLTRION INC.-2022US015962

PATIENT

DRUGS (1)
  1. TRUXIMA [Suspect]
     Active Substance: RITUXIMAB-ABBS
     Indication: Immunoglobulin G4 related disease
     Dosage: 1000 MILLIGRAM, Q2WEEKS X 2 TOTAL OF 2000 MG

REACTIONS (4)
  - Immunoglobulin G4 related disease [Unknown]
  - Off label use [Unknown]
  - Inability to afford medication [Unknown]
  - Insurance issue [Unknown]
